FAERS Safety Report 4699348-5 (Version None)
Quarter: 2005Q2

REPORT INFORMATION
  Report Type: 
  Country: None (occurrence: None)
  Receive Date: 20050624
  Receipt Date: 20050614
  Transmission Date: 20051028
  Serious: Yes (Hospitalization)
  Sender: FDA-Public Use
  Company Number: DZ-SANOFI-SYNTHELABO-A01200504150

PATIENT
  Sex: Male
  Weight: 78 kg

DRUGS (5)
  1. XATRAL [Suspect]
     Indication: BENIGN PROSTATIC HYPERPLASIA
     Route: 048
     Dates: start: 20040202, end: 20050101
  2. XATRAL [Suspect]
     Route: 048
     Dates: start: 20050101, end: 20050517
  3. AMAREL [Concomitant]
     Indication: DIABETES MELLITUS
     Route: 048
  4. GLUCOPHAGE R [Concomitant]
     Indication: DIABETES MELLITUS
     Route: 048
  5. ANDROCUR [Concomitant]
     Route: 048

REACTIONS (3)
  - ANGINA PECTORIS [None]
  - CHEST DISCOMFORT [None]
  - PALLOR [None]
